FAERS Safety Report 20419776 (Version 3)
Quarter: 2022Q1

REPORT INFORMATION
  Report Type: Spontaneous
  Country: US (occurrence: US)
  Receive Date: 20220203
  Receipt Date: 20220218
  Transmission Date: 20220424
  Serious: Yes (Hospitalization, Other)
  Sender: FDA-Public Use
  Company Number: US-AUROBINDO-AUR-APL-2022-003641

PATIENT
  Age: 68 Year
  Sex: Male

DRUGS (2)
  1. ACETAMINOPHEN [Suspect]
     Active Substance: ACETAMINOPHEN
     Indication: Back pain
     Dosage: 1 DOSAGE FORM(AS NEEDED, WHICH HE DESCRIBES TAKING A COUPLE TIMES A DAY)
     Route: 065
  2. ACETAMINOPHEN [Suspect]
     Active Substance: ACETAMINOPHEN
     Dosage: 2 DOSAGE FORM(AS NEEDED, WHICH PATIENT DESCRIBED TAKING ?1 TO 2 PILLS A COUPLE TIMES A DAY.? )
     Route: 065

REACTIONS (6)
  - Acute kidney injury [Recovered/Resolved]
  - Metabolic acidosis [Recovered/Resolved]
  - Hypernatraemia [Recovered/Resolved]
  - Pyroglutamate increased [Recovered/Resolved]
  - Toxicity to various agents [Recovered/Resolved]
  - Asthenia [Recovering/Resolving]
